FAERS Safety Report 13125608 (Version 2)
Quarter: 2017Q1

REPORT INFORMATION
  Report Type: Spontaneous
  Country: AU (occurrence: AU)
  Receive Date: 20170118
  Receipt Date: 20170123
  Transmission Date: 20170428
  Serious: Yes (Other)
  Sender: FDA-Public Use
  Company Number: AU-SA-2017SA006846

PATIENT
  Age: 78 Year
  Sex: Female

DRUGS (2)
  1. CLOPIDOGREL BISULFATE. [Suspect]
     Active Substance: CLOPIDOGREL BISULFATE
     Indication: ANTICOAGULANT THERAPY
     Route: 065
  2. ASPIRIN. [Suspect]
     Active Substance: ASPIRIN
     Route: 065

REACTIONS (6)
  - Retinal artery occlusion [Unknown]
  - Retinal disorder [Not Recovered/Not Resolved]
  - Visual acuity reduced [Unknown]
  - Retinal haemorrhage [Unknown]
  - Cystoid macular oedema [Not Recovered/Not Resolved]
  - Retinal exudates [Unknown]
